FAERS Safety Report 13062389 (Version 4)
Quarter: 2017Q1

REPORT INFORMATION
  Report Type: Report from Study
  Country: None (occurrence: FR)
  Receive Date: 20161226
  Receipt Date: 20170117
  Transmission Date: 20170428
  Serious: Yes (Death)
  Sender: FDA-Public Use
  Company Number: FR-ABBVIE-16P-056-1821606-00

PATIENT
  Age: 65 Year
  Sex: Male

DRUGS (7)
  1. RASBURICASE [Concomitant]
     Active Substance: RASBURICASE
     Indication: HYPERURICAEMIA
  2. VENETOCLAX [Suspect]
     Active Substance: VENETOCLAX
     Indication: CHRONIC LYMPHOCYTIC LEUKAEMIA
     Route: 048
     Dates: start: 20161121, end: 20161127
  3. TRIMETHOPRIME/SULFAMETHOXAZOLE (BACTRIM) [Concomitant]
     Indication: PROPHYLAXIS
     Dates: start: 20120101
  4. VENETOCLAX [Suspect]
     Active Substance: VENETOCLAX
     Route: 048
     Dates: start: 20161128, end: 20161204
  5. VALACICLOVIR (ZELITREX) [Concomitant]
     Indication: PROPHYLAXIS
     Route: 048
     Dates: start: 20120101
  6. VENETOCLAX [Suspect]
     Active Substance: VENETOCLAX
     Route: 048
     Dates: start: 20161205, end: 20161208
  7. VENETOCLAX [Suspect]
     Active Substance: VENETOCLAX
     Route: 048
     Dates: start: 20161214, end: 20161217

REACTIONS (6)
  - Autoimmune haemolytic anaemia [Fatal]
  - Sepsis [Fatal]
  - Hypoxia [Fatal]
  - Asthenia [Recovered/Resolved]
  - Multiple organ dysfunction syndrome [Fatal]
  - Pyrexia [Fatal]

NARRATIVE: CASE EVENT DATE: 20161207
